FAERS Safety Report 8465361-5 (Version None)
Quarter: 2012Q2

REPORT INFORMATION
  Report Type: 
  Country: None (occurrence: None)
  Receive Date: 20120626
  Receipt Date: 20120619
  Transmission Date: 20120825
  Serious: Yes (Hospitalization)
  Sender: FDA-Public Use
  Company Number: JP-PFIZER INC-2012146793

PATIENT
  Age: 65 Year
  Sex: Female

DRUGS (1)
  1. LYRICA [Suspect]
     Dosage: UNK
     Route: 048

REACTIONS (6)
  - THIRST [None]
  - DYSARTHRIA [None]
  - DIZZINESS [None]
  - HYPOAESTHESIA [None]
  - SURGERY [None]
  - VISUAL ACUITY REDUCED [None]
